FAERS Safety Report 6435803-5 (Version None)
Quarter: 2009Q4

REPORT INFORMATION
  Report Type: 
  Country: None (occurrence: None)
  Receive Date: 20091111
  Receipt Date: 20091102
  Transmission Date: 20100525
  Serious: Yes (Hospitalization)
  Sender: FDA-Public Use
  Company Number: JP-BRISTOL-MYERS SQUIBB COMPANY-14848857

PATIENT

DRUGS (4)
  1. CARBIDOPA + LEVODOPA [Suspect]
     Dosage: DOSE DECREASED TO 600 MG, INCREASED TO 750 MG ON AN UNKNOWN DATE.
     Route: 048
     Dates: start: 20081201
  2. RISUMIC [Concomitant]
  3. DROXIDOPA [Concomitant]
  4. URIEF [Concomitant]

REACTIONS (1)
  - LOSS OF CONSCIOUSNESS [None]
